FAERS Safety Report 12443541 (Version 1)
Quarter: 2016Q2

REPORT INFORMATION
  Report Type: Spontaneous
  Country: US (occurrence: US)
  Receive Date: 20160607
  Receipt Date: 20160607
  Transmission Date: 20160815
  Serious: Yes (Other)
  Sender: FDA-Public Use
  Company Number: US-AMGEN-USASP2016071563

PATIENT
  Sex: Male

DRUGS (4)
  1. BENADRYL [Concomitant]
     Active Substance: DIPHENHYDRAMINE HYDROCHLORIDE
     Indication: PROPHYLAXIS
     Dosage: UNK
  2. BENADRYL [Concomitant]
     Active Substance: DIPHENHYDRAMINE HYDROCHLORIDE
     Indication: EYE SWELLING
  3. PROCRIT [Suspect]
     Active Substance: ERYTHROPOIETIN
     Indication: RED BLOOD CELL ABNORMALITY
     Dosage: UNK
     Route: 065
     Dates: start: 2016
  4. NEUPOGEN [Suspect]
     Active Substance: FILGRASTIM
     Indication: RED BLOOD CELL ABNORMALITY
     Dosage: UNK UNK, 2 TIMES/WK
     Route: 065
     Dates: start: 20160520

REACTIONS (4)
  - Transfusion [Unknown]
  - Erythema [Unknown]
  - Eye swelling [Unknown]
  - Fatigue [Unknown]

NARRATIVE: CASE EVENT DATE: 2016
